FAERS Safety Report 21804933 (Version 6)
Quarter: 2024Q3

REPORT INFORMATION
  Report Type: Report from Study
  Country: PE (occurrence: PE)
  Receive Date: 20230102
  Receipt Date: 20240710
  Transmission Date: 20241017
  Serious: Yes (Hospitalization, Other)
  Sender: ROCHE
  Company Number: PE-002147023-NVSC2022PE287854

PATIENT
  Age: 43 Year
  Sex: Female

DRUGS (9)
  1. XOLAIR [Suspect]
     Active Substance: OMALIZUMAB
     Indication: Asthma
     Route: 058
     Dates: start: 201907
  2. XOLAIR [Suspect]
     Active Substance: OMALIZUMAB
     Route: 058
     Dates: end: 202312
  3. XOLAIR [Suspect]
     Active Substance: OMALIZUMAB
     Route: 058
     Dates: start: 20171001
  4. XOLAIR [Suspect]
     Active Substance: OMALIZUMAB
     Dosage: POWDER AND SOLVENT FOR SOLUTION FOR INJECTION
     Route: 058
  5. XOLAIR [Suspect]
     Active Substance: OMALIZUMAB
     Dosage: POWDER AND SOLVENT FOR SOLUTION FOR INJECTION
     Route: 058
     Dates: start: 20240429
  6. XOLAIR [Suspect]
     Active Substance: OMALIZUMAB
     Route: 058
  7. XOLAIR [Suspect]
     Active Substance: OMALIZUMAB
     Dosage: 4 AMPOULES
     Route: 058
  8. XOLAIR [Suspect]
     Active Substance: OMALIZUMAB
     Dosage: 600 MG (4 AMPOULES), BIW
     Route: 058
     Dates: start: 20240620, end: 20240620
  9. XOLAIR [Suspect]
     Active Substance: OMALIZUMAB
     Dosage: 600 MG (4 AMPOULES)
     Route: 058
     Dates: start: 20240524

REACTIONS (13)
  - Influenza [Unknown]
  - Asphyxia [Recovering/Resolving]
  - Musculoskeletal stiffness [Unknown]
  - Gait disturbance [Recovering/Resolving]
  - Nasopharyngitis [Unknown]
  - Distractibility [Unknown]
  - Fatigue [Unknown]
  - Product availability issue [Unknown]
  - Dysphonia [Unknown]
  - Asthmatic crisis [Unknown]
  - Hypoaesthesia [Not Recovered/Not Resolved]
  - Agitation [Unknown]
  - Hypersensitivity [Unknown]

NARRATIVE: CASE EVENT DATE: 20221201
